FAERS Safety Report 6810278-2 (Version None)
Quarter: 2010Q2

REPORT INFORMATION
  Report Type: 
  Country: None (occurrence: None)
  Receive Date: 20100630
  Receipt Date: 20100629
  Transmission Date: 20101027
  Serious: Yes (Other)
  Sender: FDA-Public Use
  Company Number: GXKR2010DE07145

PATIENT
  Age: 64 Year
  Sex: Female
  Weight: 37 kg

DRUGS (19)
  1. TRAMADOL 1A PHARMA (NGX) [Suspect]
     Dosage: 1 DF, QID
     Route: 048
     Dates: start: 20070415, end: 20070521
  2. GENTIANA LUTEA [Concomitant]
  3. SELENIDE SODIUM [Concomitant]
  4. MAGNESIUM [Concomitant]
  5. SALBUTAMOL [Concomitant]
  6. SPIRIVA [Concomitant]
  7. TRAMADOL ^1A FARMA^ [Concomitant]
  8. ALLOPURINOL ^1A FARMA^ [Concomitant]
  9. METOPROLOL ^APOGEPHA^ [Concomitant]
  10. METARAMINOL BITARTRATE [Concomitant]
  11. FERRUM SIDEREUM D6 [Concomitant]
  12. CLEXANE [Concomitant]
  13. LEVEMIR [Concomitant]
  14. PANKREON [Concomitant]
  15. NULYTELY [Concomitant]
  16. URSO FALK [Concomitant]
  17. MCP ^ALIUD PHARMA^ [Concomitant]
  18. SAB SIMPLEX [Concomitant]
  19. PANTOZOL [Concomitant]
     Dosage: UNK
     Route: 048

REACTIONS (1)
  - SUBILEUS [None]
